FAERS Safety Report 11409277 (Version 1)
Quarter: 2015Q3

REPORT INFORMATION
  Report Type: Spontaneous
  Country: US (occurrence: US)
  Receive Date: 20150824
  Receipt Date: 20150824
  Transmission Date: 20151125
  Serious: No
  Sender: FDA-Public Use
  Company Number: US-ASTRAZENECA-2015SE77986

PATIENT
  Age: 72 Year
  Sex: Female

DRUGS (1)
  1. NEXIUM [Suspect]
     Active Substance: ESOMEPRAZOLE MAGNESIUM
     Indication: GASTROINTESTINAL ULCER HAEMORRHAGE
     Route: 048
     Dates: start: 1989

REACTIONS (2)
  - Hiatus hernia [Unknown]
  - Product use issue [Unknown]
